FAERS Safety Report 6454250-3 (Version None)
Quarter: 2009Q4

REPORT INFORMATION
  Report Type: 
  Country: None (occurrence: None)
  Receive Date: 20091124
  Receipt Date: 20091112
  Transmission Date: 20100525
  Serious: No
  Sender: FDA-Public Use
  Company Number: US-B.I. PHARMACEUTICALS,INC./RIDGEFIELD-2009-BP-13225BP

PATIENT
  Age: 44 Year
  Sex: Male

DRUGS (1)
  1. MELOXICAM [Suspect]
     Indication: LIMB INJURY
     Dosage: 15 MG
     Route: 048
     Dates: start: 20091109

REACTIONS (3)
  - DRUG INEFFECTIVE FOR UNAPPROVED INDICATION [None]
  - FEELING JITTERY [None]
  - PALPITATIONS [None]
